FAERS Safety Report 21513351 (Version 1)
Quarter: 2022Q4

REPORT INFORMATION
  Report Type: Spontaneous
  Country: IL (occurrence: IL)
  Receive Date: 20221027
  Receipt Date: 20221027
  Transmission Date: 20230112
  Serious: Yes (Other)
  Sender: FDA-Public Use
  Company Number: IL-ASTELLAS PHARMA EUROPE B.V.-2022US037900

PATIENT
  Age: 58 Year
  Sex: Male

DRUGS (1)
  1. PADCEV [Suspect]
     Active Substance: ENFORTUMAB VEDOTIN-EJFV
     Indication: Transitional cell carcinoma
     Dosage: 95 MG, CYCLIC (ON DAYS 1, 8 AND 15 OF A 28-DAY CYCLE)
     Route: 042

REACTIONS (3)
  - Malignant neoplasm progression [Unknown]
  - Paraesthesia [Unknown]
  - Drug ineffective [Unknown]
